FAERS Safety Report 7627807-1 (Version None)
Quarter: 2011Q3

REPORT INFORMATION
  Report Type: 
  Country: None (occurrence: None)
  Receive Date: 20110721
  Receipt Date: 20110715
  Transmission Date: 20111222
  Serious: Yes (Hospitalization)
  Sender: FDA-Public Use
  Company Number: JP-ABBOTT-11P-087-0729501-00

PATIENT
  Sex: Female
  Weight: 45.6 kg

DRUGS (3)
  1. CLARITHROMYCIN [Suspect]
     Indication: NASOPHARYNGITIS
     Route: 048
     Dates: start: 20100823, end: 20100919
  2. ASVERIN [Concomitant]
     Indication: NASOPHARYNGITIS
     Route: 048
     Dates: start: 20100823, end: 20100919
  3. MUCODYNE [Concomitant]
     Indication: NASOPHARYNGITIS
     Route: 048
     Dates: start: 20100823, end: 20100919

REACTIONS (1)
  - TUBULOINTERSTITIAL NEPHRITIS AND UVEITIS SYNDROME [None]
